FAERS Safety Report 24741335 (Version 1)
Quarter: 2024Q4

REPORT INFORMATION
  Report Type: Spontaneous
  Country: GB (occurrence: GB)
  Receive Date: 20241217
  Receipt Date: 20241217
  Transmission Date: 20250115
  Serious: Yes (Other)
  Sender: TEVA
  Company Number: None

PATIENT
  Age: 67 Year
  Sex: Male
  Weight: 144 kg

DRUGS (2)
  1. RAMIPRIL [Suspect]
     Active Substance: RAMIPRIL
     Indication: Hypertension
     Dosage: AT NIGHT; DAILY DOSE: 10MG; APS RAMIPRIL
     Route: 065
     Dates: start: 20241205, end: 20241206
  2. LERCANIDIPINE [Concomitant]
     Active Substance: LERCANIDIPINE
     Indication: Hypertension

REACTIONS (1)
  - Dissociative disorder [Recovered/Resolved]

NARRATIVE: CASE EVENT DATE: 20241205
